FAERS Safety Report 24043884 (Version 1)
Quarter: 2024Q3

REPORT INFORMATION
  Report Type: Spontaneous
  Country: BE (occurrence: BE)
  Receive Date: 20240703
  Receipt Date: 20240703
  Transmission Date: 20241017
  Serious: Yes (Disabling)
  Sender: TEVA
  Company Number: None

PATIENT
  Age: 67 Year
  Sex: Male
  Weight: 100 kg

DRUGS (6)
  1. LEVOFLOXACIN [Suspect]
     Active Substance: LEVOFLOXACIN
     Indication: Prostatitis
     Dosage: PRESCRIPTION 14 DAYS + 10 DAYS 1 TABLET/DAY
     Route: 048
     Dates: start: 20240506, end: 20240529
  2. FLUTICASONE PROPIONATE [Concomitant]
     Active Substance: FLUTICASONE PROPIONATE
     Indication: Product used for unknown indication
     Route: 065
  3. AFEBRYL [Concomitant]
     Indication: Product used for unknown indication
     Route: 065
  4. ESOMEPRAZOLE [Concomitant]
     Active Substance: ESOMEPRAZOLE
     Indication: Product used for unknown indication
     Route: 065
  5. TAMSULOSIN [Concomitant]
     Active Substance: TAMSULOSIN
     Indication: Product used for unknown indication
     Route: 065
  6. NEBIVOLOL [Concomitant]
     Active Substance: NEBIVOLOL
     Indication: Product used for unknown indication
     Route: 065

REACTIONS (12)
  - Confusional state [Recovering/Resolving]
  - Amnesia [Recovering/Resolving]
  - Pain in extremity [Recovering/Resolving]
  - Myalgia [Recovering/Resolving]
  - Feeling abnormal [Recovering/Resolving]
  - Tinnitus [Recovering/Resolving]
  - Vertigo [Recovering/Resolving]
  - Dizziness [Recovering/Resolving]
  - Ocular discomfort [Recovering/Resolving]
  - Anxiety [Recovering/Resolving]
  - Tension [Recovering/Resolving]
  - Fatigue [Recovering/Resolving]
